FAERS Safety Report 26088266 (Version 3)
Quarter: 2025Q4

REPORT INFORMATION
  Report Type: Spontaneous
  Country: US (occurrence: US)
  Receive Date: 20251125
  Receipt Date: 20251231
  Transmission Date: 20260118
  Serious: No
  Sender: PFIZER
  Company Number: US-PFIZER INC-202500228663

PATIENT
  Age: 15 Year
  Sex: Male

DRUGS (1)
  1. NGENLA [Suspect]
     Active Substance: SOMATROGON-GHLA
     Dosage: 33 MG WEEKLY(GIVING 17MG IN ONE AREA  AND 16MG IN ANOTHER)

REACTIONS (2)
  - Fear of injection [Unknown]
  - Injection site pain [Unknown]
